FAERS Safety Report 10818378 (Version 8)
Quarter: 2017Q2

REPORT INFORMATION
  Report Type: Spontaneous
  Country: BR (occurrence: BR)
  Receive Date: 20150218
  Receipt Date: 20170410
  Transmission Date: 20170829
  Serious: Yes (Other)
  Sender: FDA-Public Use
  Company Number: BR-ELI_LILLY_AND_COMPANY-BR201502003143

PATIENT
  Age: 36 Year
  Sex: Male
  Weight: 62 kg

DRUGS (11)
  1. ZYPREXA [Suspect]
     Active Substance: OLANZAPINE
     Dosage: 10 MG, UNKNOWN
     Route: 065
  2. OLANZAPINE. [Suspect]
     Active Substance: OLANZAPINE
     Indication: PRODUCT USED FOR UNKNOWN INDICATION
     Dosage: UNK UNK, UNKNOWN
     Route: 065
  3. ZYPREXA [Suspect]
     Active Substance: OLANZAPINE
     Indication: EPILEPSY
     Dosage: 10 MG, QD
     Route: 048
     Dates: start: 2008
  4. ZYPREXA [Suspect]
     Active Substance: OLANZAPINE
     Indication: SEVERE MENTAL RETARDATION
     Dosage: 15 MG, QD
     Route: 048
  5. ZYPREXA [Suspect]
     Active Substance: OLANZAPINE
     Dosage: 10 MG, BID
     Route: 048
  6. FENERGAN                           /00033001/ [Concomitant]
     Active Substance: PROMETHAZINE HYDROCHLORIDE
     Indication: PRODUCT USED FOR UNKNOWN INDICATION
     Dosage: UNK UNK, BID
     Route: 065
  7. LAMOTRIGINA [Concomitant]
     Active Substance: LAMOTRIGINE
     Indication: PRODUCT USED FOR UNKNOWN INDICATION
     Dosage: UNK UNK, BID
     Route: 065
  8. ZYPREXA [Suspect]
     Active Substance: OLANZAPINE
     Dosage: 10 MG, UNKNOWN
     Route: 065
     Dates: start: 201504
  9. ZYPREXA [Suspect]
     Active Substance: OLANZAPINE
     Dosage: 10 MG, BID
     Route: 048
  10. DEPAKENE [Concomitant]
     Active Substance: VALPROIC ACID
     Indication: PRODUCT USED FOR UNKNOWN INDICATION
     Dosage: UNK UNK, BID
     Route: 065
  11. ZYPREXA [Suspect]
     Active Substance: OLANZAPINE
     Indication: PSYCHOTIC DISORDER
     Dosage: 10 MG, BID
     Route: 048
     Dates: start: 201501

REACTIONS (22)
  - Dizziness [Recovered/Resolved]
  - Insomnia [Unknown]
  - Fatigue [Unknown]
  - Swelling [Unknown]
  - Psychotic disorder [Recovering/Resolving]
  - Urinary tract infection [Recovered/Resolved]
  - Malaise [Not Recovered/Not Resolved]
  - Seizure [Not Recovered/Not Resolved]
  - Aggression [Recovered/Resolved]
  - Peripheral swelling [Recovered/Resolved]
  - Abnormal behaviour [Recovered/Resolved]
  - Agitation [Unknown]
  - Emotional disorder [Unknown]
  - Nervousness [Unknown]
  - Drug ineffective [Recovered/Resolved]
  - Epilepsy [Unknown]
  - Decreased appetite [Recovered/Resolved]
  - Diet refusal [Recovered/Resolved]
  - Speech disorder [Not Recovered/Not Resolved]
  - Eye movement disorder [Recovered/Resolved]
  - Seizure [Unknown]
  - Constipation [Unknown]

NARRATIVE: CASE EVENT DATE: 201501
